FAERS Safety Report 5261647-6 (Version None)
Quarter: 2007Q1

REPORT INFORMATION
  Report Type: 
  Country: None (occurrence: None)
  Receive Date: 20061208
  Receipt Date: 20060705
  Transmission Date: 20070707
  Serious: Yes (Other)
  Sender: FDA-Public Use
  Company Number: USA-2006-0024548

PATIENT
  Age: 53 Year
  Sex: Male
  Weight: 95.2 kg

DRUGS (3)
  1. OXYCONTIN [Suspect]
     Dosage: 80 MG, BID
     Dates: start: 20031220
  2. ZOLOFT [Concomitant]
  3. FOSAMAX [Concomitant]

REACTIONS (6)
  - DISORIENTATION [None]
  - DIZZINESS [None]
  - DRUG WITHDRAWAL SYNDROME [None]
  - HYPOTENSION [None]
  - INCORRECT DOSE ADMINISTERED [None]
  - SYNCOPE [None]
